FAERS Safety Report 4965425-4 (Version None)
Quarter: 2006Q2

REPORT INFORMATION
  Report Type: 
  Country: None (occurrence: None)
  Receive Date: 20060406
  Receipt Date: 20030605
  Transmission Date: 20061013
  Serious: Yes (Hospitalization, Disabling, Other)
  Sender: FDA-Public Use
  Company Number: US-MERCK-0306USA00766

PATIENT
  Age: 61 Year
  Sex: Female
  Weight: 93 kg

DRUGS (14)
  1. VIOXX [Suspect]
     Indication: SHOULDER PAIN
     Route: 048
     Dates: start: 19990908
  2. VIOXX [Suspect]
     Route: 065
  3. VIOXX [Suspect]
     Route: 065
  4. VIOXX [Suspect]
     Indication: ARTHRITIS
     Route: 048
     Dates: start: 19990908
  5. VIOXX [Suspect]
     Route: 065
  6. VIOXX [Suspect]
     Route: 065
  7. CAPTOPRIL MSD [Concomitant]
     Route: 048
     Dates: start: 20000101
  8. SYNTHROID [Concomitant]
     Route: 065
     Dates: start: 20000101
  9. PRILOSEC [Concomitant]
     Route: 048
     Dates: start: 20000101
  10. HUMULIN [Concomitant]
     Route: 065
     Dates: start: 20000101
  11. PLAVIX [Suspect]
     Route: 065
     Dates: start: 20000101
  12. GLUCOTROL XL [Concomitant]
     Route: 065
     Dates: start: 20000101
  13. EVISTA [Concomitant]
     Route: 065
     Dates: start: 20000101
  14. AMITRIPTYLINE HYDROCHLORIDE [Concomitant]
     Route: 065
     Dates: start: 20000101

REACTIONS (57)
  - AMYOTROPHY [None]
  - ANGINA PECTORIS [None]
  - ARTERIOSCLEROSIS [None]
  - ARTHRALGIA [None]
  - ARTHROPATHY [None]
  - ASTHENIA [None]
  - CARDIOVASCULAR DISORDER [None]
  - CEREBRAL INFARCTION [None]
  - CEREBROVASCULAR ACCIDENT [None]
  - CEREBROVASCULAR DISORDER [None]
  - CHEST DISCOMFORT [None]
  - CHEST PAIN [None]
  - CHONDROMALACIA [None]
  - COAGULOPATHY [None]
  - CONSTIPATION [None]
  - CONVULSION [None]
  - DIABETES MELLITUS INADEQUATE CONTROL [None]
  - DIABETIC COMPLICATION [None]
  - DIABETIC NEUROPATHY [None]
  - DIFFICULTY IN WALKING [None]
  - DIVERTICULUM [None]
  - DIZZINESS [None]
  - DYSPNOEA [None]
  - ECCHYMOSIS [None]
  - EYE INJURY [None]
  - FALL [None]
  - FATIGUE [None]
  - GASTRITIS [None]
  - GASTROINTESTINAL HAEMORRHAGE [None]
  - HAEMORRHOIDAL HAEMORRHAGE [None]
  - HAND FRACTURE [None]
  - HYPERGLYCAEMIA [None]
  - HYPERTENSION [None]
  - HYPOTENSION [None]
  - JOINT DISLOCATION [None]
  - LIGAMENT SPRAIN [None]
  - LIMB INJURY [None]
  - MENISCUS LESION [None]
  - MENTAL STATUS CHANGES [None]
  - MUSCLE SPASMS [None]
  - MYELODYSPLASTIC SYNDROME [None]
  - ORTHOSTATIC HYPOTENSION [None]
  - PAIN IN EXTREMITY [None]
  - PANCYTOPENIA [None]
  - PERONEAL NERVE INJURY [None]
  - PHARYNGITIS [None]
  - RADICULOPATHY [None]
  - SHOULDER PAIN [None]
  - SUBCUTANEOUS ABSCESS [None]
  - SURGERY [None]
  - SYNCOPE [None]
  - SYSTEMIC LUPUS ERYTHEMATOSUS [None]
  - THROMBOSIS [None]
  - TRANSIENT ISCHAEMIC ATTACK [None]
  - UPPER RESPIRATORY TRACT INFECTION [None]
  - URINARY TRACT INFECTION [None]
  - VERTIGO [None]
